FAERS Safety Report 11880195 (Version 1)
Quarter: 2015Q4

REPORT INFORMATION
  Report Type: Spontaneous
  Country: IT (occurrence: IT)
  Receive Date: 20151230
  Receipt Date: 20151230
  Transmission Date: 20160305
  Serious: Yes (Life-Threatening, Other)
  Sender: FDA-Public Use
  Company Number: IT-ACTAVIS-2015-27554

PATIENT
  Age: 41 Year
  Sex: Female

DRUGS (2)
  1. GABAPENTIN. [Suspect]
     Active Substance: GABAPENTIN
     Indication: DRUG ABUSE
     Dosage: 3200 MG, TOTAL
     Route: 048
     Dates: start: 20151025, end: 20151025
  2. GABAPENTIN. [Suspect]
     Active Substance: GABAPENTIN
     Indication: SUICIDE ATTEMPT
     Dosage: 1200 MG, TOTAL
     Route: 048
     Dates: start: 20110816, end: 20110816

REACTIONS (4)
  - Suicide attempt [Unknown]
  - Drug abuse [Unknown]
  - Drug abuse [Unknown]
  - Aspartate aminotransferase increased [Unknown]

NARRATIVE: CASE EVENT DATE: 20110816
